FAERS Safety Report 22642978 (Version 1)
Quarter: 2023Q2

REPORT INFORMATION
  Report Type: Spontaneous
  Country: US (occurrence: US)
  Receive Date: 20230627
  Receipt Date: 20230627
  Transmission Date: 20230721
  Serious: No
  Sender: FDA-Public Use
  Company Number: US-ALCON LABORATORIES-ALC2023US000635

PATIENT
  Age: 68 Year
  Sex: Female

DRUGS (1)
  1. PATADAY TWICE A DAY RELIEF [Suspect]
     Active Substance: OLOPATADINE HYDROCHLORIDE
     Indication: Product used for unknown indication
     Dosage: 1 DRP IN EACH EYE
     Route: 047
     Dates: start: 20230115, end: 20230116

REACTIONS (1)
  - Eyelid irritation [Unknown]

NARRATIVE: CASE EVENT DATE: 20230115
